FAERS Safety Report 9753056 (Version 1)
Quarter: 2013Q4

REPORT INFORMATION
  Report Type: Spontaneous
  Country: US (occurrence: None)
  Receive Date: 20131211
  Receipt Date: 20131211
  Transmission Date: 20140711
  Serious: Yes (Hospitalization, Disabling)
  Sender: FDA-Public Use
  Company Number: 2052659

PATIENT
  Age: 79 Year
  Sex: Female

DRUGS (3)
  1. AMIODARONE [Suspect]
     Indication: ATRIAL FLUTTER
     Dosage: (NOT OTHERWISE SPECIFIED)
     Route: 042
  2. AMIODARONE [Suspect]
     Indication: ATRIAL FLUTTER
     Dosage: 2 DAY
     Route: 048
  3. AMIODARONE [Suspect]
     Indication: VENTRICULAR TACHYCARDIA
     Dosage: 2 DAY
     Route: 048

REACTIONS (11)
  - Ataxia [None]
  - Paraesthesia [None]
  - Balance disorder [None]
  - Asthenia [None]
  - Lethargy [None]
  - Ventricular tachycardia [None]
  - Gait disturbance [None]
  - Eosinophilia [None]
  - Neurotoxicity [None]
  - Aspartate aminotransferase increased [None]
  - Alanine aminotransferase increased [None]
